FAERS Safety Report 9507134 (Version 2)
Quarter: 2013Q3

REPORT INFORMATION
  Report Type: Spontaneous
  Country: US (occurrence: US)
  Receive Date: 20130909
  Receipt Date: 20130910
  Transmission Date: 20140515
  Serious: No
  Sender: FDA-Public Use
  Company Number: US-009507513-1308USA012027

PATIENT
  Age: 60 Year
  Sex: Female

DRUGS (14)
  1. PEGINTRON [Suspect]
     Indication: HEPATITIS C
     Dosage: REDIPEN, 150 MICROGRAM, ONCE WEEKLY (ON MONDAYS)
     Route: 058
     Dates: start: 20130722
  2. TOPROL XL TABLETS [Concomitant]
  3. AMLODIPINE [Concomitant]
  4. HYDROCHLOROTHIAZIDE [Concomitant]
  5. NYSTATIN [Concomitant]
  6. Q DRYL [Concomitant]
  7. MAGNESIA [MILK OF] [Concomitant]
  8. FLUOXETINE [Concomitant]
  9. PREDNISONE [Concomitant]
  10. ATORVASTATIN [Concomitant]
  11. COZAAR [Concomitant]
  12. ONDANSETRON HYDROCHLORIDE [Concomitant]
  13. METFORMIN [Concomitant]
  14. KINERET [Concomitant]

REACTIONS (2)
  - Fatigue [Unknown]
  - Abdominal pain upper [Unknown]
